FAERS Safety Report 9814796 (Version 2)
Quarter: 2014Q1

REPORT INFORMATION
  Report Type: Spontaneous
  Country: MY (occurrence: MY)
  Receive Date: 20140113
  Receipt Date: 20140129
  Transmission Date: 20141002
  Serious: Yes (Other)
  Sender: FDA-Public Use
  Company Number: ALCN2014MY000487

PATIENT
  Age: 2 Month
  Sex: Female
  Weight: 1.4 kg

DRUGS (3)
  1. CYCLOMYDRIL [Suspect]
     Dosage: 1 UNK, ONCE/SINGLE
     Route: 047
     Dates: start: 20120709, end: 20120709
  2. CHLORAL HYDRATE [Concomitant]
     Dosage: 60 MG, ONCE/SINGLE
     Dates: start: 20120709, end: 20120709
  3. MORPHINE [Concomitant]
     Indication: PUPIL DILATION PROCEDURE
     Dosage: 0.1 MG, ONCE/SINGLE
     Dates: start: 20120709, end: 20120709

REACTIONS (3)
  - Apnoea [Recovering/Resolving]
  - Heart rate decreased [Recovering/Resolving]
  - Oxygen saturation decreased [Recovering/Resolving]
